FAERS Safety Report 5195157-1 (Version None)
Quarter: 2006Q4

REPORT INFORMATION
  Report Type: 
  Country: None (occurrence: None)
  Receive Date: 20061229
  Receipt Date: 20061219
  Transmission Date: 20070319
  Serious: Yes (Other)
  Sender: FDA-Public Use
  Company Number: DE-BOEHRINGER INGELHEIM GMBH, GERMANY-2006-DE-06784GD

PATIENT
  Age: 48 Year
  Sex: Female

DRUGS (4)
  1. PRAMIPEXOLE DIHYDROCHLORIDE [Suspect]
     Indication: PARKINSON'S DISEASE
  2. CITALOPRAM HYDROBROMIDE [Suspect]
     Indication: PARKINSON'S DISEASE
  3. LEVODOPA [Suspect]
     Indication: PARKINSON'S DISEASE
  4. ENTACAPONE [Suspect]
     Indication: PARKINSON'S DISEASE

REACTIONS (1)
  - DRUG INEFFECTIVE [None]
